FAERS Safety Report 8962818 (Version 1)
Quarter: 2012Q4

REPORT INFORMATION
  Report Type: 
  Country: BE (occurrence: BE)
  Receive Date: 20121213
  Receipt Date: 20121213
  Transmission Date: 20130627
  Serious: Yes (Hospitalization)
  Sender: FDA-Public Use
  Company Number: BE-ROXANE LABORATORIES, INC.-2012-RO-02562RO

PATIENT
  Age: 46 Year
  Sex: Female

DRUGS (5)
  1. LEVETIRACETAM [Suspect]
     Indication: CONVULSION
  2. LAMOTRIGINE [Suspect]
     Indication: CONVULSION
  3. LAMOTRIGINE [Suspect]
  4. GABAPENTIN [Suspect]
     Indication: CONVULSION
  5. VALPROIC ACID [Suspect]
     Indication: CONVULSION

REACTIONS (5)
  - Hypothermia [Recovered/Resolved]
  - Apathy [Unknown]
  - Decreased appetite [Unknown]
  - Hypotension [Unknown]
  - Oxygen saturation decreased [Unknown]
